FAERS Safety Report 21035867 (Version 2)
Quarter: 2022Q3

REPORT INFORMATION
  Report Type: Spontaneous
  Country: US (occurrence: US)
  Receive Date: 20220701
  Receipt Date: 20220721
  Transmission Date: 20221026
  Serious: No
  Sender: FDA-Public Use
  Company Number: US-SA-SAC20220630000264

PATIENT
  Sex: Male
  Weight: 71.395 kg

DRUGS (2)
  1. DUPIXENT [Suspect]
     Active Substance: DUPILUMAB
     Indication: Dermatitis atopic
     Dosage: 300MG,QOW
     Route: 058
     Dates: start: 202206
  2. DUPIXENT [Suspect]
     Active Substance: DUPILUMAB
     Indication: Illness

REACTIONS (7)
  - Scar [Not Recovered/Not Resolved]
  - Pruritus [Not Recovered/Not Resolved]
  - Skin haemorrhage [Not Recovered/Not Resolved]
  - Urticaria [Not Recovered/Not Resolved]
  - Eczema [Unknown]
  - Product use in unapproved indication [Unknown]
  - Drug ineffective [Unknown]
